FAERS Safety Report 7134474-2 (Version None)
Quarter: 2010Q4

REPORT INFORMATION
  Report Type: 
  Country: None (occurrence: None)
  Receive Date: 20101203
  Receipt Date: 20101129
  Transmission Date: 20110411
  Serious: Yes (Other)
  Sender: FDA-Public Use
  Company Number: AU-PFIZER INC-2010160759

PATIENT
  Age: 63 Year
  Sex: Male
  Weight: 100 kg

DRUGS (8)
  1. XANAX [Suspect]
     Dosage: 2 MG, 4X/DAY
  2. CYMBALTA [Concomitant]
     Dosage: 60 MG, 1X/DAY
  3. EPILIM [Concomitant]
     Dosage: 200 MG, 2X/DAY
  4. TEGRETOL [Concomitant]
     Dosage: 200 MG, 2X/DAY
  5. HYPNODORM [Concomitant]
     Dosage: UNK
  6. NEXIUM [Concomitant]
     Dosage: UNK
  7. SEROQUEL [Concomitant]
     Dosage: 200 MG, 4X/DAY
  8. LEVOTHYROXINE SODIUM [Concomitant]
     Dosage: 50 UG, UNK

REACTIONS (3)
  - DEPENDENCE [None]
  - FAECALOMA [None]
  - MENTAL IMPAIRMENT [None]
